FAERS Safety Report 20661503 (Version 10)
Quarter: 2023Q2

REPORT INFORMATION
  Report Type: Report from Study
  Country: CA (occurrence: CA)
  Receive Date: 20220401
  Receipt Date: 20230404
  Transmission Date: 20230721
  Serious: Yes (Other)
  Sender: FDA-Public Use
  Company Number: CA-JNJFOC-20220359245

PATIENT
  Age: 15 Year
  Sex: Female
  Weight: 42 kg

DRUGS (7)
  1. REMICADE [Suspect]
     Active Substance: INFLIXIMAB
     Indication: Colitis ulcerative
     Route: 042
     Dates: start: 20220309
  2. REMICADE [Suspect]
     Active Substance: INFLIXIMAB
     Dosage: OVERALL DOSE 400 X1.4 = 560 MG
     Route: 042
     Dates: start: 20220531
  3. REMICADE [Suspect]
     Active Substance: INFLIXIMAB
     Dosage: ON 16-JUL-2022, THE PATIENT^S PARTIAL MAYO SURVEY WAS COMPLETED AND RECEIVED HER 8TH INFUSION OF REM
     Route: 042
     Dates: start: 2022
  4. REMICADE [Suspect]
     Active Substance: INFLIXIMAB
     Dosage: 600 MG STAT AND THEN 600 MG EVERY 4 WEEKS
     Route: 042
     Dates: start: 2022
  5. REMICADE [Suspect]
     Active Substance: INFLIXIMAB
     Route: 042
  6. REMICADE [Suspect]
     Active Substance: INFLIXIMAB
     Dosage: 800 MG DOSE DECREASED BACK TO 600 MG
     Route: 042
  7. REMICADE [Suspect]
     Active Substance: INFLIXIMAB
     Route: 042

REACTIONS (6)
  - Haemorrhage [Unknown]
  - Colitis ulcerative [Unknown]
  - Drug level increased [Unknown]
  - Drug level decreased [Not Recovered/Not Resolved]
  - Off label use [Unknown]
  - Incorrect drug administration rate [Unknown]

NARRATIVE: CASE EVENT DATE: 20220101
